FAERS Safety Report 16998088 (Version 1)
Quarter: 2019Q4

REPORT INFORMATION
  Report Type: Spontaneous
  Country: US (occurrence: US)
  Receive Date: 20191105
  Receipt Date: 20191105
  Transmission Date: 20200122
  Serious: Yes (Hospitalization)
  Sender: FDA-Public Use
  Company Number: None

PATIENT
  Sex: Female

DRUGS (7)
  1. CAPECITABINE. [Suspect]
     Active Substance: CAPECITABINE
     Indication: BREAST CANCER FEMALE
     Route: 048
     Dates: start: 20181027, end: 20191024
  2. AMITRIPTYLIN [Concomitant]
     Active Substance: AMITRIPTYLINE
  3. IRON [Concomitant]
     Active Substance: IRON
  4. MULTIVITAMIN [Concomitant]
     Active Substance: VITAMINS
  5. FENTANLY [Concomitant]
     Active Substance: FENTANYL
  6. GABAPENTIN. [Concomitant]
     Active Substance: GABAPENTIN
  7. TROMETHAMINE. [Concomitant]
     Active Substance: TROMETHAMINE

REACTIONS (5)
  - Pain [None]
  - Gait inability [None]
  - Drug ineffective [None]
  - Nausea [None]
  - Malignant neoplasm progression [None]
